FAERS Safety Report 9391133 (Version 1)
Quarter: 2013Q3

REPORT INFORMATION
  Report Type: Spontaneous
  Country: US (occurrence: None)
  Receive Date: 20130705
  Receipt Date: 20130705
  Transmission Date: 20140515
  Serious: Yes (Other)
  Sender: FDA-Public Use
  Company Number: None

PATIENT
  Age: 61 Year
  Sex: Female

DRUGS (1)
  1. CYCLOSPORINE [Suspect]
     Dosage: 100MG BID PO
     Route: 048
     Dates: start: 20130220, end: 201305

REACTIONS (2)
  - Hypoperfusion [None]
  - Renal disorder [None]
